FAERS Safety Report 11165993 (Version 2)
Quarter: 2015Q4

REPORT INFORMATION
  Report Type: Report from Study
  Country: JP (occurrence: JP)
  Receive Date: 20150604
  Receipt Date: 20151106
  Transmission Date: 20160304
  Serious: Yes (Hospitalization)
  Sender: FDA-Public Use
  Company Number: JP-009507513-1506JPN002013

PATIENT
  Age: 56 Year
  Sex: Male
  Weight: 82.4 kg

DRUGS (6)
  1. BEZATOL SR [Concomitant]
     Active Substance: BEZAFIBRATE
  2. SEIBULE [Concomitant]
     Active Substance: MIGLITOL
  3. GLACTIV [Suspect]
     Active Substance: SITAGLIPTIN
     Indication: TYPE 2 DIABETES MELLITUS
     Dosage: 50 MG, QD
     Route: 048
     Dates: start: 20110710, end: 20110805
  4. DIOVAN [Concomitant]
     Active Substance: VALSARTAN
  5. ACTOS [Concomitant]
     Active Substance: PIOGLITAZONE HYDROCHLORIDE
  6. AMARYL [Concomitant]
     Active Substance: GLIMEPIRIDE

REACTIONS (3)
  - Weight decreased [Unknown]
  - Protein urine [Unknown]
  - Pancreatic carcinoma [Unknown]

NARRATIVE: CASE EVENT DATE: 20110801
